FAERS Safety Report 5907124-8 (Version None)
Quarter: 2008Q4

REPORT INFORMATION
  Report Type: 
  Country: None (occurrence: None)
  Receive Date: 20081003
  Receipt Date: 20080924
  Transmission Date: 20090506
  Serious: Yes (Hospitalization)
  Sender: FDA-Public Use
  Company Number: JP-ASTRAZENECA-2008SE04474

PATIENT
  Age: 28149 Day
  Sex: Female

DRUGS (11)
  1. BLOPRESS [Suspect]
     Indication: HYPERTENSION
     Route: 048
     Dates: end: 20080916
  2. HOCHUUEKKITOU [Suspect]
     Indication: DEPRESSION
     Route: 048
  3. HOCHUUEKKITOU [Suspect]
     Route: 048
     Dates: end: 20080907
  4. SANWA SHAKUYAKUKANZOUBUSHITOU [Suspect]
     Route: 048
  5. SANWA SHAKUYAKUKANZOUBUSHITOU [Suspect]
     Route: 048
     Dates: end: 20080907
  6. BENET TABLETS 17.5MG [Concomitant]
     Indication: OSTEOPOROSIS
     Route: 048
     Dates: end: 20080914
  7. LIPITOR [Concomitant]
     Indication: HYPERCHOLESTEROLAEMIA
     Route: 048
     Dates: end: 20080914
  8. ATELEC [Concomitant]
     Indication: HYPERTENSION
     Route: 048
     Dates: end: 20080914
  9. LUVOX [Concomitant]
     Indication: DEPRESSION
     Route: 048
     Dates: end: 20080914
  10. DEPAS [Concomitant]
     Indication: DEPRESSION
     Route: 048
     Dates: end: 20080914
  11. ALSIODOL [Concomitant]
     Indication: OSTEOPOROSIS
     Route: 048
     Dates: end: 20080914

REACTIONS (3)
  - HYPOKALAEMIA [None]
  - PSEUDOALDOSTERONISM [None]
  - RHABDOMYOLYSIS [None]
